FAERS Safety Report 16901451 (Version 1)
Quarter: 2019Q4

REPORT INFORMATION
  Report Type: Spontaneous
  Country: GB (occurrence: GB)
  Receive Date: 20191009
  Receipt Date: 20191009
  Transmission Date: 20200122
  Serious: Yes (Hospitalization, Other)
  Sender: FDA-Public Use
  Company Number: GB-AUROBINDO-AUR-APL-2019-065179

PATIENT
  Age: 52 Year

DRUGS (3)
  1. IBUPROFEN TABLETS [Suspect]
     Active Substance: IBUPROFEN
     Indication: LOWER LIMB FRACTURE
     Dosage: 1200 MILLIGRAM, ONCE A DAY
     Route: 065
  2. OMEPRAZOLE. [Concomitant]
     Active Substance: OMEPRAZOLE
     Indication: PRODUCT USED FOR UNKNOWN INDICATION
     Dosage: 20 MILLIGRAM, AS NECESSARY (EACH MORNING)
     Route: 065
  3. AMITRIPTYLINE [Concomitant]
     Active Substance: AMITRIPTYLINE
     Indication: PRODUCT USED FOR UNKNOWN INDICATION
     Dosage: 20 MILLIGRAM, ONCE A DAY (EACH NIGHT)
     Route: 065

REACTIONS (8)
  - Dyspepsia [Unknown]
  - Anaemia [Recovering/Resolving]
  - Erosive duodenitis [Recovering/Resolving]
  - Dyspnoea [Unknown]
  - Haemorrhage [Unknown]
  - Fatigue [Unknown]
  - Lethargy [Unknown]
  - Faeces discoloured [Unknown]

NARRATIVE: CASE EVENT DATE: 20190618
